FAERS Safety Report 15320856 (Version 1)
Quarter: 2018Q3

REPORT INFORMATION
  Report Type: Spontaneous
  Country: US (occurrence: US)
  Receive Date: 20180821
  Receipt Date: 20180821
  Transmission Date: 20181010
  Serious: No
  Sender: FDA-Public Use
  Company Number: None

PATIENT
  Age: 66 Year
  Sex: Male

DRUGS (1)
  1. HUMIRA [Suspect]
     Active Substance: ADALIMUMAB
     Indication: RASH PAPULOSQUAMOUS
     Route: 058
     Dates: start: 20170913

REACTIONS (3)
  - Psoriasis [None]
  - Stress [None]
  - Emotional disorder [None]

NARRATIVE: CASE EVENT DATE: 20180721
